FAERS Safety Report 19953588 (Version 2)
Quarter: 2023Q2

REPORT INFORMATION
  Report Type: Report from Study
  Country: AT (occurrence: AT)
  Receive Date: 20211013
  Receipt Date: 20230412
  Transmission Date: 20230722
  Serious: Yes (Other)
  Sender: FDA-Public Use
  Company Number: AT-CELLTRION HEALTHCARE HUNGARY KFT-2020AT022577

PATIENT

DRUGS (14)
  1. TRASTUZUMAB [Suspect]
     Active Substance: TRASTUZUMAB
     Indication: Breast cancer
     Dosage: 330 MG, Q3W (330 MG EVERY 3 WEEKS (MOST RECENT
     Route: 042
     Dates: start: 20181113, end: 20190918
  2. TRASTUZUMAB [Suspect]
     Active Substance: TRASTUZUMAB
     Indication: HER2 positive breast cancer
     Dosage: 330 MG, Q28D (330 MG EVERY 4 WEEKS (MOST RECENT
     Route: 042
     Dates: start: 20190918
  3. PACLITAXEL [Suspect]
     Active Substance: PACLITAXEL
     Indication: Breast cancer
     Dosage: 199 MG, QW ((WEEKLY; MOST RECENT
     Route: 042
     Dates: start: 20181205, end: 20190515
  4. PACLITAXEL [Suspect]
     Active Substance: PACLITAXEL
     Indication: HER2 positive breast cancer
     Dosage: 199 MG, QW (199 MILLIGRAM,
     Route: 042
     Dates: start: 20181205, end: 20190515
  5. PACLITAXEL [Suspect]
     Active Substance: PACLITAXEL
     Dosage: 199 MG, QW (WEEKLY, MOST RECENT
     Route: 042
     Dates: start: 20181215
  6. PERTUZUMAB [Suspect]
     Active Substance: PERTUZUMAB
     Indication: HER2 positive breast cancer
     Dosage: 420 MG, Q3W (EVERY 3 WEEKS (MOST RECENT
     Route: 042
     Dates: start: 20181113, end: 20190918
  7. PERTUZUMAB [Suspect]
     Active Substance: PERTUZUMAB
     Indication: Breast cancer
     Dosage: 420 MG, Q28D (EVERY 4 WEEKS (MOST RECENT
     Route: 042
     Dates: start: 20190918
  8. EXEMESTANE [Suspect]
     Active Substance: EXEMESTANE
     Indication: HER2 positive breast cancer
     Dosage: UNK
     Route: 065
  9. EXEMESTANE [Suspect]
     Active Substance: EXEMESTANE
     Indication: Breast cancer
     Dosage: 25 MG, QD
     Route: 048
     Dates: start: 20181108
  10. DENOSUMAB [Suspect]
     Active Substance: DENOSUMAB
     Indication: HER2 positive breast cancer
     Dosage: 120 MG, Q28D (EVERY 4 WEEKS)
     Route: 058
     Dates: start: 20190104
  11. Oleovit [Concomitant]
     Dosage: ONGOING = CHECKED
     Route: 065
     Dates: start: 20181108
  12. DIAZEPAM [Concomitant]
     Active Substance: DIAZEPAM
     Dosage: ONGOING = CHECKED
     Route: 065
     Dates: start: 20181108
  13. PANTOPRAZOLE [Concomitant]
     Active Substance: PANTOPRAZOLE
     Dosage: ONGOING = CHECKED
     Route: 065
     Dates: start: 20181108
  14. PREGABALIN [Concomitant]
     Active Substance: PREGABALIN
     Dosage: ONGOING = CHECKED
     Route: 065

REACTIONS (4)
  - Polyneuropathy [Recovered/Resolved]
  - Stomatitis [Recovered/Resolved]
  - Arthralgia [Recovered/Resolved]
  - Off label use [Unknown]

NARRATIVE: CASE EVENT DATE: 20181207
